FAERS Safety Report 13745249 (Version 1)
Quarter: 2017Q3

REPORT INFORMATION
  Report Type: Spontaneous
  Country: US (occurrence: US)
  Receive Date: 20170712
  Receipt Date: 20170712
  Transmission Date: 20171127
  Serious: No
  Sender: FDA-Public Use
  Company Number: US-009507513-1707USA000124

PATIENT
  Sex: Male

DRUGS (1)
  1. ZEPATIER [Suspect]
     Active Substance: ELBASVIR\GRAZOPREVIR
     Indication: MALAISE
     Dosage: 50/100, DAILY
     Route: 048
     Dates: start: 20170530

REACTIONS (3)
  - Insomnia [Unknown]
  - Hyperhidrosis [Unknown]
  - Hot flush [Unknown]
